FAERS Safety Report 7982128-2 (Version None)
Quarter: 2011Q4

REPORT INFORMATION
  Report Type: 
  Country: None (occurrence: None)
  Receive Date: 20111214
  Receipt Date: 20111214
  Transmission Date: 20120403
  Serious: Yes (Hospitalization)
  Sender: FDA-Public Use
  Company Number: None

PATIENT
  Age: 66 Year
  Sex: Male
  Weight: 74 kg

DRUGS (4)
  1. METHOXYAMINE [Suspect]
     Indication: DIFFUSE LARGE B-CELL LYMPHOMA
     Dosage: 15MG/M2, DAY 2/Q28, IV
     Route: 042
     Dates: start: 20111026
  2. METHOXYAMINE [Suspect]
     Indication: NON-HODGKIN'S LYMPHOMA
     Dosage: 15MG/M2, DAY 2/Q28, IV
     Route: 042
     Dates: start: 20111026
  3. FLUDARABINE PHOSPHATE [Suspect]
     Indication: DIFFUSE LARGE B-CELL LYMPHOMA
     Dosage: 25MG/M2, DAY1-5/Q28, IV
     Route: 042
     Dates: start: 20111025, end: 20111029
  4. FLUDARABINE PHOSPHATE [Suspect]
     Indication: NON-HODGKIN'S LYMPHOMA
     Dosage: 25MG/M2, DAY1-5/Q28, IV
     Route: 042
     Dates: start: 20111025, end: 20111029

REACTIONS (4)
  - PULMONARY EMBOLISM [None]
  - NO THERAPEUTIC RESPONSE [None]
  - SINUS TACHYCARDIA [None]
  - DYSPNOEA [None]
